FAERS Safety Report 17036652 (Version 1)
Quarter: 2019Q4

REPORT INFORMATION
  Report Type: Spontaneous
  Country: HR (occurrence: HR)
  Receive Date: 20191115
  Receipt Date: 20191115
  Transmission Date: 20200122
  Serious: Yes (Other)
  Sender: FDA-Public Use
  Company Number: HR-PFIZER INC-2019490932

PATIENT
  Age: 17 Year
  Sex: Female

DRUGS (3)
  1. HELEX [Suspect]
     Active Substance: ALPRAZOLAM
     Dosage: 15 MG, UNK
     Route: 048
     Dates: start: 201908, end: 201908
  2. ZOLOFT [Suspect]
     Active Substance: SERTRALINE HYDROCHLORIDE
     Dosage: 50 MG, UNK
     Route: 048
     Dates: start: 201908, end: 201908
  3. ARVIND [Suspect]
     Active Substance: LAMOTRIGINE
     Dosage: 1 DF, UNK
     Route: 048
     Dates: start: 201908, end: 201908

REACTIONS (5)
  - Somnolence [Unknown]
  - Blood pressure decreased [Unknown]
  - Intentional overdose [Unknown]
  - Suicide attempt [Unknown]
  - Toxicity to various agents [Unknown]

NARRATIVE: CASE EVENT DATE: 201908
